FAERS Safety Report 5622742-2 (Version None)
Quarter: 2008Q1

REPORT INFORMATION
  Report Type: 
  Country: None (occurrence: None)
  Receive Date: 20080212
  Receipt Date: 20080201
  Transmission Date: 20080703
  Serious: Yes (Death, Life-Threatening, Hospitalization)
  Sender: FDA-Public Use
  Company Number: US-JNJFOC-20041205376

PATIENT
  Sex: Female

DRUGS (8)
  1. TMC114 [Suspect]
     Route: 048
     Dates: start: 20040408, end: 20040807
  2. TMC114 [Suspect]
     Indication: HIV INFECTION
     Route: 048
     Dates: start: 20040408, end: 20040807
  3. RITONAVIR [Suspect]
     Indication: HIV INFECTION
     Route: 048
     Dates: start: 20040408, end: 20040807
  4. TENOFOVIR DISOPROXIL FUMARATE [Concomitant]
     Indication: HIV INFECTION
     Route: 048
  5. ENFUVIRTIDE [Concomitant]
     Indication: HIV INFECTION
     Route: 030
  6. LAMIVUDINE [Concomitant]
     Indication: HIV INFECTION
     Route: 048
  7. SEPTRA [Concomitant]
     Indication: OPPORTUNISTIC INFECTION PROPHYLAXIS
     Dosage: STARTED PRE-TRIAL
     Route: 048
  8. AZITHROMYCIN [Concomitant]
     Indication: OPPORTUNISTIC INFECTION PROPHYLAXIS
     Dosage: STARTED PRE-TRIAL
     Route: 048

REACTIONS (2)
  - STAPHYLOCOCCAL INFECTION [None]
  - THROMBOCYTOPENIA [None]
